FAERS Safety Report 9759868 (Version 1)
Quarter: 2013Q4

REPORT INFORMATION
  Report Type: Spontaneous
  Country: BR (occurrence: BR)
  Receive Date: 20131216
  Receipt Date: 20131216
  Transmission Date: 20140711
  Serious: Yes (Hospitalization, Other)
  Sender: FDA-Public Use
  Company Number: BR-NOVOPROD-394983

PATIENT
  Sex: Male

DRUGS (2)
  1. LEVEMIR FLEXPEN [Suspect]
     Indication: TYPE 1 DIABETES MELLITUS
     Dosage: 28 IU, QD
     Route: 064
  2. NPH INSULIN [Concomitant]

REACTIONS (3)
  - Infection [Recovered/Resolved]
  - Foetal cardiac disorder [Unknown]
  - Foetal exposure during pregnancy [Recovered/Resolved]
